FAERS Safety Report 24267162 (Version 1)
Quarter: 2024Q3

REPORT INFORMATION
  Report Type: Spontaneous
  Country: FR (occurrence: FR)
  Receive Date: 20240830
  Receipt Date: 20240830
  Transmission Date: 20241016
  Serious: Yes (Hospitalization)
  Sender: AMGEN
  Company Number: None

PATIENT
  Age: 77 Year
  Sex: Male
  Weight: 62 kg

DRUGS (7)
  1. BEVACIZUMAB [Suspect]
     Active Substance: BEVACIZUMAB
     Indication: Hepatocellular carcinoma
     Dosage: 15 MILLIGRAM/KILOGRAM, Q3WK
     Route: 040
     Dates: start: 20221214, end: 20240604
  2. TECENTRIQ [Suspect]
     Active Substance: ATEZOLIZUMAB
     Indication: Hepatocellular carcinoma
     Dosage: 1200 MILLIGRAM, Q3WK
     Route: 040
     Dates: start: 20221214, end: 20240604
  3. TELMISARTAN [Concomitant]
     Active Substance: TELMISARTAN
     Indication: Hypertension
     Dosage: 40 MILLIGRAM, Q12H
     Route: 048
  4. SILODOSIN [Concomitant]
     Active Substance: SILODOSIN
     Indication: Prostatic adenoma
     Dosage: 8 MILLIGRAM, QD
     Route: 048
  5. Loxen [Concomitant]
     Indication: Hypertension
     Dosage: 20 MILLIGRAM
     Route: 048
  6. HYDROCHLOROTHIAZIDE [Concomitant]
     Active Substance: HYDROCHLOROTHIAZIDE
     Indication: Hypertension
     Dosage: 25 MILLIGRAM, QD
     Route: 048
  7. LEVOTHYROXINE [Concomitant]
     Active Substance: LEVOTHYROXINE\LEVOTHYROXINE SODIUM
     Indication: Hypothyroidism
     Dosage: 1 DOSAGE FORM, QD
     Route: 048

REACTIONS (1)
  - Colitis microscopic [Recovering/Resolving]

NARRATIVE: CASE EVENT DATE: 20240627
